FAERS Safety Report 6215599-2 (Version None)
Quarter: 2009Q2

REPORT INFORMATION
  Report Type: 
  Country: None (occurrence: None)
  Receive Date: 20090603
  Receipt Date: 20090603
  Transmission Date: 20091009
  Serious: No
  Sender: FDA-Public Use
  Company Number: None

PATIENT
  Sex: Female
  Weight: 63.5036 kg

DRUGS (1)
  1. DOXYCYCLINE 20MG TAB [Suspect]
     Dosage: 1 PILL EVERY 12 HOURS
     Dates: start: 20090514, end: 20090517

REACTIONS (6)
  - ASTHENIA [None]
  - FATIGUE [None]
  - LIP SWELLING [None]
  - OEDEMA PERIPHERAL [None]
  - PYREXIA [None]
  - SWELLING FACE [None]
